FAERS Safety Report 6039589-8 (Version None)
Quarter: 2009Q1

REPORT INFORMATION
  Report Type: 
  Country: None (occurrence: None)
  Receive Date: 20090116
  Receipt Date: 20090113
  Transmission Date: 20090719
  Serious: Yes (Death)
  Sender: FDA-Public Use
  Company Number: US-BRISTOL-MYERS SQUIBB COMPANY-14469340

PATIENT
  Age: 40 Year
  Sex: Female

DRUGS (7)
  1. TRAZODONE HCL [Suspect]
     Route: 065
  2. CODEINE SUL TAB [Suspect]
     Route: 065
  3. DIPHENHYDRAMINE HCL [Suspect]
     Route: 065
  4. CYCLOBENZAPRINE HCL [Suspect]
     Route: 065
  5. CITALOPRAM HYDROBROMIDE [Suspect]
     Route: 065
  6. OLANZAPINE [Suspect]
     Route: 065
  7. DEXTROMETHORPHAN HYDROBROMIDE [Suspect]
     Route: 065

REACTIONS (1)
  - COMPLETED SUICIDE [None]
